FAERS Safety Report 26082311 (Version 2)
Quarter: 2025Q4

REPORT INFORMATION
  Report Type: Spontaneous
  Country: EU (occurrence: EU)
  Receive Date: 20251124
  Receipt Date: 20251205
  Transmission Date: 20260118
  Serious: Yes (Other)
  Sender: ROCHE
  Company Number: EU-ROCHE-10000438619

PATIENT
  Age: 69 Year
  Sex: Female

DRUGS (1)
  1. VABYSMO [Suspect]
     Active Substance: FARICIMAB-SVOA
     Indication: Diabetic retinal oedema
     Dosage: SECOND DOSE, DATE 22/OCT/2025
     Route: 065

REACTIONS (3)
  - Toxic anterior segment syndrome [Unknown]
  - Iridocyclitis [Unknown]
  - Chorioretinitis [Unknown]
